FAERS Safety Report 13504308 (Version 2)
Quarter: 2017Q2

REPORT INFORMATION
  Report Type: Spontaneous
  Country: JP (occurrence: JP)
  Receive Date: 20170502
  Receipt Date: 20170526
  Transmission Date: 20170830
  Serious: Yes (Other)
  Sender: FDA-Public Use
  Company Number: JP-JNJFOC-20150421258

PATIENT

DRUGS (4)
  1. PEGINTERFERON ALFA 2B [Concomitant]
     Active Substance: PEGINTERFERON ALFA-2B
     Indication: CHRONIC HEPATITIS C
     Route: 065
  2. SOVRIAD [Suspect]
     Active Substance: SIMEPREVIR
     Indication: CHRONIC HEPATITIS C
     Route: 048
  3. RIBAVIRIN. [Concomitant]
     Active Substance: RIBAVIRIN
     Indication: CHRONIC HEPATITIS C
     Route: 048
  4. PEGINTERFERON ALFA-2A [Concomitant]
     Active Substance: PEGINTERFERON ALFA-2A
     Indication: CHRONIC HEPATITIS C
     Route: 058

REACTIONS (15)
  - Remission not achieved [Unknown]
  - Dysgeusia [Recovered/Resolved]
  - Listless [Unknown]
  - Decreased appetite [Recovered/Resolved]
  - Depression [Recovered/Resolved]
  - Stomatitis [Recovered/Resolved]
  - Insomnia [Recovered/Resolved]
  - Hepatitis C RNA increased [Recovered/Resolved]
  - Alanine aminotransferase increased [Unknown]
  - Blood thyroid stimulating hormone increased [Unknown]
  - Blood bilirubin increased [Recovered/Resolved]
  - Malaise [Recovered/Resolved]
  - Eczema [Recovered/Resolved]
  - Alopecia [Recovered/Resolved]
  - Pruritus [Recovered/Resolved]
